FAERS Safety Report 17786173 (Version 6)
Quarter: 2020Q3

REPORT INFORMATION
  Report Type: Report from Study
  Country: None (occurrence: US)
  Receive Date: 20200513
  Receipt Date: 20200829
  Transmission Date: 20201102
  Serious: Yes (Other)
  Sender: FDA-Public Use
  Company Number: US-ABBVIE-20K-163-3398505-00

PATIENT
  Age: 63 Year
  Sex: Male

DRUGS (3)
  1. HUMIRA [Suspect]
     Active Substance: ADALIMUMAB
     Indication: PSORIASIS
     Dosage: CITRATE FREE
     Route: 058
     Dates: end: 202006
  2. HUMIRA [Suspect]
     Active Substance: ADALIMUMAB
     Route: 058
     Dates: start: 202006
  3. HUMIRA [Suspect]
     Active Substance: ADALIMUMAB
     Indication: ANKYLOSING SPONDYLITIS
     Route: 058
     Dates: start: 20191111

REACTIONS (19)
  - Musculoskeletal stiffness [Recovered/Resolved]
  - Neck pain [Recovering/Resolving]
  - Device issue [Recovered/Resolved]
  - Incorrect dose administered [Recovered/Resolved]
  - Musculoskeletal disorder [Not Recovered/Not Resolved]
  - Trigger finger [Not Recovered/Not Resolved]
  - Incorrect dose administered [Unknown]
  - Device issue [Not Recovered/Not Resolved]
  - Pain [Recovering/Resolving]
  - Carpal tunnel syndrome [Recovering/Resolving]
  - Fatigue [Recovering/Resolving]
  - Arthralgia [Recovering/Resolving]
  - Pain in extremity [Recovering/Resolving]
  - Rotator cuff syndrome [Not Recovered/Not Resolved]
  - General physical condition abnormal [Recovered/Resolved]
  - Back pain [Recovering/Resolving]
  - Feeling abnormal [Recovered/Resolved]
  - Surgical failure [Unknown]
  - Wrong technique in product usage process [Unknown]

NARRATIVE: CASE EVENT DATE: 202003
